FAERS Safety Report 7971545-2 (Version None)
Quarter: 2011Q4

REPORT INFORMATION
  Report Type: 
  Country: None (occurrence: None)
  Receive Date: 20111212
  Receipt Date: 20111208
  Transmission Date: 20120403
  Serious: Yes (Life-Threatening, Hospitalization)
  Sender: FDA-Public Use
  Company Number: SE-ASTRAZENECA-2011SE74281

PATIENT
  Age: 56 Year
  Sex: Male

DRUGS (4)
  1. SIMPONI [Suspect]
  2. CRESTOR [Suspect]
     Route: 048
     Dates: start: 20111003, end: 20111029
  3. NAPROXEN [Suspect]
  4. METOPROLOL ACTAVIS [Suspect]

REACTIONS (1)
  - CHOLECYSTITIS [None]
